FAERS Safety Report 21902316 (Version 1)
Quarter: 2023Q1

REPORT INFORMATION
  Report Type: Spontaneous
  Country: KR (occurrence: KR)
  Receive Date: 20230124
  Receipt Date: 20230124
  Transmission Date: 20230418
  Serious: Yes (Hospitalization, Other)
  Sender: FDA-Public Use
  Company Number: KR-ALKEM LABORATORIES LIMITED-KR-ALKEM-2022-12558

PATIENT
  Age: 22 Year
  Sex: Female

DRUGS (6)
  1. LACOSAMIDE [Suspect]
     Active Substance: LACOSAMIDE
     Indication: Seizure
     Dosage: 100 MILLIGRAM, QD
     Route: 065
  2. CLOBAZAM [Concomitant]
     Active Substance: CLOBAZAM
     Indication: Seizure
     Dosage: 30 MILLIGRAM, QD
     Route: 065
  3. CLOBAZAM [Concomitant]
     Active Substance: CLOBAZAM
     Dosage: 20 MILLIGRAM, QD
     Route: 065
  4. CLOBAZAM [Concomitant]
     Active Substance: CLOBAZAM
     Dosage: 30 MILLIGRAM, QD (INCREASED DOSE)
     Route: 065
  5. ZONISAMIDE [Concomitant]
     Active Substance: ZONISAMIDE
     Indication: Seizure
     Dosage: 300 MILLIGRAM, QD
     Route: 065
  6. TIANEPTINE [Concomitant]
     Active Substance: TIANEPTINE
     Indication: Depression
     Dosage: 25 MILLIGRAM, QD
     Route: 065

REACTIONS (1)
  - Drug-induced liver injury [Unknown]
